FAERS Safety Report 16164509 (Version 2)
Quarter: 2019Q2

REPORT INFORMATION
  Report Type: Spontaneous
  Country: JP (occurrence: JP)
  Receive Date: 20190405
  Receipt Date: 20190417
  Transmission Date: 20190711
  Serious: Yes (Hospitalization, Other)
  Sender: FDA-Public Use
  Company Number: JP-PFIZER INC-2018276465

PATIENT
  Age: 60 Year
  Sex: Male

DRUGS (3)
  1. TORISEL [Suspect]
     Active Substance: TEMSIROLIMUS
     Dosage: UNK, CYCLIC
     Route: 041
     Dates: start: 20181116
  2. TORISEL [Suspect]
     Active Substance: TEMSIROLIMUS
     Indication: RENAL CELL CARCINOMA
     Dosage: UNK
     Route: 041
  3. TORISEL [Suspect]
     Active Substance: TEMSIROLIMUS
     Dosage: UNK, CYCLIC (3RD CYCLE)
     Route: 041
     Dates: start: 20180706

REACTIONS (5)
  - Cell marker increased [Unknown]
  - Cardiac failure [Recovering/Resolving]
  - Platelet count decreased [Unknown]
  - Anaemia [Unknown]
  - Pneumonia [Recovering/Resolving]

NARRATIVE: CASE EVENT DATE: 20180706
